FAERS Safety Report 8422440-6 (Version None)
Quarter: 2012Q2

REPORT INFORMATION
  Report Type: 
  Country: None (occurrence: None)
  Receive Date: 20120608
  Receipt Date: 20120605
  Transmission Date: 20120825
  Serious: Yes (Other)
  Sender: FDA-Public Use
  Company Number: US-PFIZER INC-2012137132

PATIENT
  Sex: Female

DRUGS (9)
  1. INSULIN [Concomitant]
     Dosage: 10 UNITS, UNK
  2. WELLBUTRIN [Concomitant]
     Dosage: 150 MG, 2X/DAY
  3. METFORMIN [Concomitant]
     Dosage: 500 MG, 2X/DAY
  4. GABAPENTIN [Concomitant]
     Dosage: 300 MG, 2X/DAY
  5. SYMBICORT [Concomitant]
     Dosage: 80/4.5 MG, UNK
  6. LYRICA [Suspect]
     Indication: FIBROMYALGIA
     Dosage: 75 MG, 2X/DAY
     Route: 048
     Dates: start: 20120602, end: 20120605
  7. METOPROLOL [Concomitant]
     Dosage: 50 MG, 1X/DAY
  8. XANAX [Suspect]
     Indication: ANXIETY
     Dosage: UNK
     Dates: start: 20120529, end: 20120605
  9. TOPAMAX [Concomitant]
     Dosage: 100 MG, 1X/DAY

REACTIONS (3)
  - AGITATION [None]
  - PANIC ATTACK [None]
  - INSOMNIA [None]
